FAERS Safety Report 25052337 (Version 2)
Quarter: 2025Q1

REPORT INFORMATION
  Report Type: Spontaneous
  Country: AR (occurrence: AR)
  Receive Date: 20250307
  Receipt Date: 20250311
  Transmission Date: 20250409
  Serious: Yes (Other)
  Sender: PFIZER
  Company Number: AR-PFIZER INC-202500050860

PATIENT
  Age: 76 Year
  Sex: Male

DRUGS (1)
  1. VYNDAMAX [Suspect]
     Active Substance: TAFAMIDIS
     Indication: Cardiac amyloidosis
     Dosage: 61 MG, DAILY
     Dates: start: 20221109

REACTIONS (4)
  - Diabetes mellitus [Unknown]
  - Renal disorder [Unknown]
  - Drug ineffective [Unknown]
  - Illness [Unknown]
